FAERS Safety Report 9749398 (Version 1)
Quarter: 2013Q4

REPORT INFORMATION
  Report Type: Spontaneous
  Country: US (occurrence: US)
  Receive Date: 20131212
  Receipt Date: 20131212
  Transmission Date: 20140711
  Serious: No
  Sender: FDA-Public Use
  Company Number: US-BIOGENIDEC-2013BI093063

PATIENT
  Sex: Female

DRUGS (10)
  1. TECFIDERA [Suspect]
     Indication: MULTIPLE SCLEROSIS
     Route: 048
     Dates: start: 20130909
  2. ADVIL [Concomitant]
  3. AMANTADINE HCL [Concomitant]
  4. AMPYRA [Concomitant]
  5. GABAPENTIN [Concomitant]
  6. HYDROCHOLOROTHIAZIDE [Concomitant]
  7. OMEPRAZOLE [Concomitant]
  8. OXYBUTYNIN CHLORIDE [Concomitant]
  9. CALCIUM + VIT D + VIT K [Concomitant]
  10. CENTRUM SILVER [Concomitant]

REACTIONS (1)
  - Nausea [Unknown]
